FAERS Safety Report 4798391-5 (Version None)
Quarter: 2005Q4

REPORT INFORMATION
  Report Type: 
  Country: None (occurrence: None)
  Receive Date: 20051011
  Receipt Date: 20051010
  Transmission Date: 20060501
  Serious: Yes (Other)
  Sender: FDA-Public Use
  Company Number: 12534

PATIENT
  Sex: Female

DRUGS (4)
  1. CISPLATIN [Suspect]
     Indication: NEOPLASM
     Dosage: 75 MG/M2
  2. FLUOROURACIL [Suspect]
     Indication: NEOPLASM
     Dosage: 200 MG/M2 IV
     Route: 042
  3. LEUCOVORIN [Suspect]
     Indication: NEOPLASM
     Dosage: 20 MG/M2 IV
     Route: 042
  4. DOCETAXEL [Suspect]
     Indication: NEOPLASM
     Dosage: 50 MG/M2

REACTIONS (3)
  - DISEASE PROGRESSION [None]
  - MYOCARDIAL INFARCTION [None]
  - NEOPLASM [None]
